FAERS Safety Report 12504873 (Version 1)
Quarter: 2016Q2

REPORT INFORMATION
  Report Type: Spontaneous
  Country: US (occurrence: US)
  Receive Date: 20160628
  Receipt Date: 20160628
  Transmission Date: 20160815
  Serious: No
  Sender: FDA-Public Use
  Company Number: US-BAYER-2016-118910

PATIENT
  Age: 30 Month
  Sex: Female

DRUGS (1)
  1. CHILDREN CLARITIN ALLERGY [Suspect]
     Active Substance: LORATADINE
     Indication: ROUTINE HEALTH MAINTENANCE
     Dosage: 1 DF, EACH NIGHT

REACTIONS (3)
  - Intentional product use issue [None]
  - Product use issue [None]
  - Therapeutic response unexpected [None]
